FAERS Safety Report 16792957 (Version 2)
Quarter: 2020Q1

REPORT INFORMATION
  Report Type: Report from Study
  Country: FR (occurrence: FR)
  Receive Date: 20190910
  Receipt Date: 20200115
  Transmission Date: 20200409
  Serious: Yes (Other)
  Sender: FDA-Public Use
  Company Number: FR-ROCHE-2403802

PATIENT

DRUGS (5)
  1. PARACETAMOL [Concomitant]
     Active Substance: ACETAMINOPHEN
  2. METHYLPREDNISOLONE. [Concomitant]
     Active Substance: METHYLPREDNISOLONE
     Route: 065
  3. BENDAMUSTINE [Concomitant]
     Active Substance: BENDAMUSTINE
  4. RITUXIMAB. [Suspect]
     Active Substance: RITUXIMAB
     Indication: PRODUCT USED FOR UNKNOWN INDICATION
     Route: 041
  5. RITUXIMAB. [Suspect]
     Active Substance: RITUXIMAB
     Dosage: HAD 2 INFUSIONS
     Route: 041

REACTIONS (10)
  - Cryoglobulinaemia [Unknown]
  - Arthralgia [Unknown]
  - Nausea [Unknown]
  - Pyrexia [Unknown]
  - Kaposi^s sarcoma [Unknown]
  - Rash [Unknown]
  - Skin lesion [Unknown]
  - Vomiting [Unknown]
  - Bronchospasm [Unknown]
  - Malaise [Unknown]
